FAERS Safety Report 15540154 (Version 3)
Quarter: 2018Q4

REPORT INFORMATION
  Report Type: Report from Study
  Country: US (occurrence: US)
  Receive Date: 20181023
  Receipt Date: 20181130
  Transmission Date: 20190205
  Serious: Yes (Other)
  Sender: FDA-Public Use
  Company Number: US-AMGEN-USASL2018138461

PATIENT
  Age: 71 Year
  Sex: Female

DRUGS (1)
  1. REPATHA [Suspect]
     Active Substance: EVOLOCUMAB
     Indication: HYPERCHOLESTEROLAEMIA
     Dosage: 420 MG/3.5 ML, UNK
     Route: 065
     Dates: start: 20180831, end: 201810

REACTIONS (7)
  - Gait disturbance [Recovered/Resolved]
  - Back pain [Recovered/Resolved]
  - Muscle spasms [Unknown]
  - Rhinorrhoea [Recovered/Resolved]
  - Injection site erythema [Recovered/Resolved]
  - Injection site bruising [Recovered/Resolved]
  - Injection site swelling [Recovered/Resolved]

NARRATIVE: CASE EVENT DATE: 20180831
